FAERS Safety Report 11113070 (Version 1)
Quarter: 2015Q2

REPORT INFORMATION
  Report Type: Report from Study
  Country: BR (occurrence: BR)
  Receive Date: 20150514
  Receipt Date: 20150514
  Transmission Date: 20150821
  Serious: Yes (Other)
  Sender: FDA-Public Use
  Company Number: BR-ABBVIE-15K-020-1388606-00

PATIENT
  Sex: Male
  Weight: 75 kg

DRUGS (1)
  1. HUMIRA [Suspect]
     Active Substance: ADALIMUMAB
     Indication: PSORIASIS
     Route: 058
     Dates: start: 20090630

REACTIONS (7)
  - Angina pectoris [Not Recovered/Not Resolved]
  - Cataract [Not Recovered/Not Resolved]
  - Cardiac disorder [Unknown]
  - Hearing impaired [Unknown]
  - Visual impairment [Not Recovered/Not Resolved]
  - Hypertension [Unknown]
  - Glaucoma [Unknown]

NARRATIVE: CASE EVENT DATE: 2013
